FAERS Safety Report 9324210 (Version 1)
Quarter: 2013Q2

REPORT INFORMATION
  Report Type: Spontaneous
  Country: IT (occurrence: IT)
  Receive Date: 20130603
  Receipt Date: 20130603
  Transmission Date: 20140414
  Serious: Yes (Death, Hospitalization)
  Sender: FDA-Public Use
  Company Number: IT-ELI_LILLY_AND_COMPANY-IT201305008821

PATIENT
  Age: 67 Year
  Sex: Male

DRUGS (1)
  1. GEMZAR [Suspect]
     Indication: NON-SMALL CELL LUNG CANCER
     Dosage: 1700 MG, WEEKLY (1/W)
     Route: 042
     Dates: start: 20130514

REACTIONS (1)
  - Hepatorenal syndrome [Fatal]
